FAERS Safety Report 19158038 (Version 1)
Quarter: 2021Q2

REPORT INFORMATION
  Report Type: Spontaneous
  Country: US (occurrence: US)
  Receive Date: 20210419
  Receipt Date: 20210419
  Transmission Date: 20210717
  Serious: Yes (Other)
  Sender: FDA-Public Use
  Company Number: None

PATIENT
  Age: 15 Year
  Sex: Female
  Weight: 53.1 kg

DRUGS (4)
  1. ABILIFY [Concomitant]
     Active Substance: ARIPIPRAZOLE
  2. REMERON [Suspect]
     Active Substance: MIRTAZAPINE
     Indication: DEPRESSION
     Route: 048
     Dates: start: 20210408, end: 20210417
  3. REMERON [Suspect]
     Active Substance: MIRTAZAPINE
     Indication: SOCIAL ANXIETY DISORDER
     Route: 048
     Dates: start: 20210408, end: 20210417
  4. REMERON [Suspect]
     Active Substance: MIRTAZAPINE
     Indication: EATING DISORDER
     Route: 048
     Dates: start: 20210408, end: 20210417

REACTIONS (2)
  - Sudden hearing loss [None]
  - Deafness unilateral [None]

NARRATIVE: CASE EVENT DATE: 20210415
